FAERS Safety Report 8924469 (Version 1)
Quarter: 2012Q4

REPORT INFORMATION
  Report Type: 
  Country: US (occurrence: US)
  Receive Date: 20121126
  Receipt Date: 20121126
  Transmission Date: 20130627
  Serious: Yes (Other)
  Sender: FDA-Public Use
  Company Number: PHHY2012US106479

PATIENT
  Age: 19 Year
  Sex: Male

DRUGS (1)
  1. MINOCYCLINE [Suspect]

REACTIONS (7)
  - Polyarteritis nodosa [Unknown]
  - Pyrexia [Unknown]
  - Testicular pain [Unknown]
  - Fatigue [Unknown]
  - Myalgia [Unknown]
  - Sinus disorder [Unknown]
  - Hypertension [Unknown]
